FAERS Safety Report 5969431-2 (Version None)
Quarter: 2008Q4

REPORT INFORMATION
  Report Type: 
  Country: None (occurrence: None)
  Receive Date: 20081126
  Receipt Date: 20080902
  Transmission Date: 20090506
  Serious: No
  Sender: FDA-Public Use
  Company Number: US-ABBOTT-08P-163-0473789-00

PATIENT
  Sex: Female

DRUGS (3)
  1. SIMCOR [Suspect]
     Indication: DRUG USE FOR UNKNOWN INDICATION
     Dosage: 500/20 MG AT BEDTIME
     Dates: start: 20080801, end: 20080801
  2. SIMCOR [Suspect]
     Dates: start: 20080801
  3. SIMCOR [Suspect]

REACTIONS (1)
  - FLUSHING [None]
